FAERS Safety Report 5394518-5 (Version None)
Quarter: 2007Q3

REPORT INFORMATION
  Report Type: 
  Country: None (occurrence: None)
  Receive Date: 20070718
  Receipt Date: 20060925
  Transmission Date: 20080115
  Serious: Yes (Hospitalization)
  Sender: FDA-Public Use
  Company Number: 2006119031

PATIENT
  Sex: Male

DRUGS (2)
  1. CELEBREX [Suspect]
     Dates: start: 20020101, end: 20030101
  2. BEXTRA [Suspect]
     Dates: start: 20020101, end: 20030101

REACTIONS (1)
  - MYOCARDIAL INFARCTION [None]
